FAERS Safety Report 8756629 (Version 2)
Quarter: 2012Q4

REPORT INFORMATION
  Report Type: 
  Country: US (occurrence: US)
  Receive Date: 20120828
  Receipt Date: 20121218
  Transmission Date: 20130627
  Serious: Yes (Hospitalization)
  Sender: FDA-Public Use
  Company Number: US-BAYER-2012-087405

PATIENT
  Age: 18 Year
  Sex: Female
  Weight: 54 kg

DRUGS (8)
  1. YASMIN [Suspect]
     Indication: MENSTRUAL CYCLE MANAGEMENT
     Dosage: UNK
     Dates: start: 2004, end: 2006
  2. YASMIN [Suspect]
     Indication: BIRTH CONTROL
  3. OCELLA [Suspect]
     Indication: BIRTH CONTROL
     Dosage: UNK
     Dates: start: 2004, end: 2006
  4. OCELLA [Suspect]
     Indication: MENSTRUAL CYCLE MANAGEMENT
  5. IMITREX [Concomitant]
     Indication: MIGRAINE
     Dosage: UNK
     Dates: start: 2002, end: 2008
  6. RELPAX [Concomitant]
     Indication: MIGRAINE
     Dosage: UNK
     Dates: start: 2002, end: 2008
  7. ALEVE [Concomitant]
     Dosage: UNK
     Dates: start: 2004, end: 2012
  8. ADVIL [Concomitant]
     Indication: HEADACHE
     Dosage: UNK
     Dates: start: 2004, end: 2012

REACTIONS (6)
  - Cholelithiasis [None]
  - Injury [None]
  - Pain [None]
  - Emotional distress [None]
  - Anxiety [None]
  - Psychological trauma [None]
